FAERS Safety Report 8169530-3 (Version None)
Quarter: 2012Q1

REPORT INFORMATION
  Report Type: 
  Country: None (occurrence: None)
  Receive Date: 20120222
  Receipt Date: 20120206
  Transmission Date: 20120608
  Serious: Yes (Other)
  Sender: FDA-Public Use
  Company Number: CRC-11-274

PATIENT
  Sex: Male

DRUGS (1)
  1. VECURONIUM BROMIDE [Suspect]
     Dosage: 8 MG + 2MG ONCE; IV
     Route: 042
     Dates: start: 20111028

REACTIONS (2)
  - MUSCLE TWITCHING [None]
  - DRUG INEFFECTIVE [None]
